FAERS Safety Report 7918047 (Version 3)
Quarter: 2013Q4

REPORT INFORMATION
  Report Type: Spontaneous
  Country: US (occurrence: US)
  Receive Date: 20110428
  Receipt Date: 20131212
  Transmission Date: 20140711
  Serious: Yes (Other)
  Sender: FDA-Public Use
  Company Number: US-ASTRAZENECA-2010SE49741

PATIENT
  Age: 57 Year
  Sex: Female

DRUGS (3)
  1. ZOMIG [Suspect]
     Indication: MIGRAINE
     Route: 048
     Dates: start: 2006
  2. ZOFRAN [Concomitant]
  3. POLIO [Concomitant]

REACTIONS (7)
  - Post polio syndrome [Unknown]
  - Road traffic accident [Unknown]
  - Migraine [Unknown]
  - Migraine [Unknown]
  - Hypoaesthesia [Unknown]
  - Hypoaesthesia [Unknown]
  - Drug dose omission [Unknown]
